FAERS Safety Report 5299301-7 (Version None)
Quarter: 2007Q2

REPORT INFORMATION
  Report Type: 
  Country: None (occurrence: None)
  Receive Date: 20070403
  Receipt Date: 20070403
  Transmission Date: 20071010
  Serious: Yes (Other)
  Sender: FDA-Public Use
  Company Number: None

PATIENT
  Age: 57 Year
  Sex: Female
  Weight: 95.2554 kg

DRUGS (2)
  1. HOODIA [Suspect]
     Indication: WEIGHT CONTROL
     Dosage: 1 PATCH QD TRANSDERMAL
     Route: 062
     Dates: start: 20070310, end: 20070315
  2. HOODIA [Suspect]
     Indication: WEIGHT CONTROL
     Dosage: 1 PATCH QD TRANSDERMAL
     Route: 062
     Dates: start: 20070330, end: 20070405

REACTIONS (2)
  - NAUSEA [None]
  - VOMITING [None]
